FAERS Safety Report 17899047 (Version 1)
Quarter: 2020Q2

REPORT INFORMATION
  Report Type: Spontaneous
  Country: US (occurrence: US)
  Receive Date: 20200616
  Receipt Date: 20200616
  Transmission Date: 20200714
  Serious: No
  Sender: FDA-Public Use
  Company Number: US-AMGEN-USASP2020093106

PATIENT
  Age: 80 Year
  Sex: Female

DRUGS (4)
  1. REPATHA [Suspect]
     Active Substance: EVOLOCUMAB
     Indication: BLOOD CHOLESTEROL INCREASED
     Dosage: 140 MILLIGRAM, Q2WK
     Route: 065
     Dates: start: 201811
  2. INSULIN [Concomitant]
     Active Substance: INSULIN NOS
     Dosage: UNK, BID
  3. INSULIN [Concomitant]
     Active Substance: INSULIN NOS
     Dosage: UNK, QD
  4. REPATHA [Suspect]
     Active Substance: EVOLOCUMAB
     Indication: PROPHYLAXIS

REACTIONS (2)
  - Device use error [Unknown]
  - Malaise [Unknown]

NARRATIVE: CASE EVENT DATE: 2020
